FAERS Safety Report 18431222 (Version 1)
Quarter: 2020Q4

REPORT INFORMATION
  Report Type: Other
  Country: CA (occurrence: CA)
  Receive Date: 20201027
  Receipt Date: 20201027
  Transmission Date: 20210114
  Serious: Yes (Other)
  Sender: FDA-Public Use
  Company Number: CA-PFIZER INC-2020411241

PATIENT

DRUGS (4)
  1. CALCIUM CHLORIDE. [Suspect]
     Active Substance: CALCIUM CHLORIDE
     Dosage: UNK
     Route: 064
  2. HYDROXYCHLOROQUINE [Suspect]
     Active Substance: HYDROXYCHLOROQUINE
     Dosage: UNK
     Route: 064
  3. ASPIRIN [ACETYLSALICYLIC ACID] [Suspect]
     Active Substance: ASPIRIN
     Dosage: 162 MG, 1X/DAY
     Route: 064
  4. ENOXAPARIN [Suspect]
     Active Substance: ENOXAPARIN
     Dosage: 40 MG, 1 EVERY 1 DAYS
     Route: 064

REACTIONS (3)
  - Premature baby [Unknown]
  - Foetal exposure during pregnancy [Unknown]
  - Foetal growth restriction [Unknown]
